FAERS Safety Report 9082215 (Version 1)
Quarter: 2013Q1

REPORT INFORMATION
  Report Type: Spontaneous
  Country: US (occurrence: US)
  Receive Date: 20130218
  Receipt Date: 20130218
  Transmission Date: 20140127
  Serious: No
  Sender: FDA-Public Use
  Company Number: US-PFIZER INC-2013057215

PATIENT
  Age: 65 Year
  Sex: Female
  Weight: 52 kg

DRUGS (3)
  1. CELEBREX [Suspect]
     Dosage: 200 MG, 1X/DAY
     Route: 048
  2. DETROL LA [Suspect]
     Dosage: 2 MG, 1X/DAY
     Route: 048
  3. LEVALBUTEROL [Concomitant]
     Dosage: UNK

REACTIONS (2)
  - Back pain [Unknown]
  - Fall [Unknown]
